FAERS Safety Report 15586862 (Version 1)
Quarter: 2018Q4

REPORT INFORMATION
  Report Type: Spontaneous
  Country: US (occurrence: US)
  Receive Date: 20181101
  Receipt Date: 20181101
  Transmission Date: 20190205
  Serious: Yes (Hospitalization)
  Sender: FDA-Public Use
  Company Number: None

PATIENT
  Age: 38 Year
  Sex: Female
  Weight: 64.9 kg

DRUGS (5)
  1. CYTARABINE. [Suspect]
     Active Substance: CYTARABINE
     Dosage: ?          OTHER FREQUENCY:1-4 DAYS, 7-10 DAY;?
     Dates: end: 20181012
  2. VINCRISTINE SULFATE. [Suspect]
     Active Substance: VINCRISTINE SULFATE
     Dosage: ?          OTHER FREQUENCY:DAY 14, DAY 21 ;?
     Dates: end: 20181023
  3. METHOTREXATE. [Suspect]
     Active Substance: METHOTREXATE
     Dosage: ?          OTHER FREQUENCY:DAY 1, DAY 7, DAY,;?
     Dates: end: 20181023
  4. ONCASPAR [Suspect]
     Active Substance: PEGASPARGASE
     Dosage: ?          OTHER STRENGTH:3450 UNIT;OTHER DOSE:3540 UNIT;?
     Dates: end: 20181016
  5. CYCLOPHOSPHAMIDE. [Suspect]
     Active Substance: CYCLOPHOSPHAMIDE
     Dates: end: 20181003

REACTIONS (9)
  - Scan bone marrow abnormal [None]
  - Subdural haematoma [None]
  - CSF protein increased [None]
  - Anaemia [None]
  - Deep vein thrombosis [None]
  - Xanthochromia [None]
  - Intracranial hypotension [None]
  - CSF red blood cell count positive [None]
  - Obesity [None]

NARRATIVE: CASE EVENT DATE: 20181023
